FAERS Safety Report 9723704 (Version 7)
Quarter: 2014Q2

REPORT INFORMATION
  Report Type: Report from Study
  Country: US (occurrence: US)
  Receive Date: 20131202
  Receipt Date: 20140423
  Transmission Date: 20141212
  Serious: Yes (Hospitalization, Other)
  Sender: FDA-Public Use
  Company Number: US-BRISTOL-MYERS SQUIBB COMPANY-19851427

PATIENT
  Age: 54 Year
  Sex: Female
  Weight: 70.2 kg

DRUGS (11)
  1. IPILIMUMAB [Suspect]
     Indication: MALIGNANT MELANOMA
     Dosage: TOTAL DOSE:700MG
     Route: 042
     Dates: start: 20131028
  2. INTRON A [Suspect]
     Indication: MALIGNANT MELANOMA
     Dosage: 1DF=10MU/M2?RESTARTED ON 02DEC2013?TOTAL:576MGL LAST DOSE:18NOV13
     Route: 058
     Dates: start: 20131028
  3. ACETAMINOPHEN [Concomitant]
  4. ALBUTEROL [Concomitant]
  5. VITAMIN C [Concomitant]
  6. BACLOFEN [Concomitant]
  7. TEGRETOL [Concomitant]
  8. DOCUSATE SODIUM [Concomitant]
  9. NEXIUM [Concomitant]
  10. FLUTICASONE [Concomitant]
  11. MULTIVITAMINS + MINERALS [Concomitant]

REACTIONS (3)
  - Haemolytic anaemia [Not Recovered/Not Resolved]
  - Hyponatraemia [Recovered/Resolved]
  - Hypophosphataemia [Not Recovered/Not Resolved]
